FAERS Safety Report 8816780 (Version 1)
Quarter: 2012Q4

REPORT INFORMATION
  Report Type: Spontaneous
  Country: US (occurrence: None)
  Receive Date: 20121001
  Receipt Date: 20121001
  Transmission Date: 20130627
  Serious: Yes (Death, Life-Threatening)
  Sender: FDA-Public Use
  Company Number: 2012MA011638

PATIENT
  Age: 79 Year
  Sex: Female

DRUGS (8)
  1. METFORMIN HYDROCHLORIDE [Suspect]
     Indication: TYPE 2 DIABETES MELLITUS
     Route: 048
  2. ASS [Concomitant]
  3. METOPROLOL [Concomitant]
  4. CYTOBION [Concomitant]
  5. KEPPRA [Concomitant]
  6. NOVALGIN [Concomitant]
  7. FURO [Concomitant]
  8. TRAMAL [Concomitant]

REACTIONS (2)
  - Lactic acidosis [None]
  - Renal failure acute [None]
